FAERS Safety Report 5749773-6 (Version None)
Quarter: 2008Q2

REPORT INFORMATION
  Report Type: 
  Country: None (occurrence: None)
  Receive Date: 20080527
  Receipt Date: 20080526
  Transmission Date: 20081010
  Serious: Yes (Other)
  Sender: FDA-Public Use
  Company Number: US-BAYER-200815853NA

PATIENT

DRUGS (2)
  1. AVELOX [Suspect]
     Indication: BRONCHITIS
     Dosage: UNIT DOSE: 400 MG
     Route: 048
  2. AVELOX [Suspect]
     Route: 042

REACTIONS (2)
  - BRONCHITIS [None]
  - CLOSTRIDIAL INFECTION [None]
